FAERS Safety Report 22321423 (Version 1)
Quarter: 2023Q2

REPORT INFORMATION
  Report Type: Spontaneous
  Country: JP (occurrence: JP)
  Receive Date: 20230515
  Receipt Date: 20230515
  Transmission Date: 20230722
  Serious: Yes (Disabling)
  Sender: FDA-Public Use
  Company Number: JP-SANOFI-2018SA211584

PATIENT
  Age: 11 Year
  Sex: Male
  Weight: 20.5 kg

DRUGS (17)
  1. SABRIL [Suspect]
     Active Substance: VIGABATRIN
     Indication: Infantile spasms
     Dosage: BID (1000 MG/DAY)
     Route: 048
     Dates: start: 20170629, end: 20170718
  2. SABRIL [Suspect]
     Active Substance: VIGABATRIN
     Dosage: BID (1500 MG/DAY)
     Route: 048
     Dates: start: 20170719, end: 20170725
  3. SABRIL [Suspect]
     Active Substance: VIGABATRIN
     Dosage: BID (2000 MG/DAY)
     Route: 048
     Dates: start: 20170726, end: 20170801
  4. SABRIL [Suspect]
     Active Substance: VIGABATRIN
     Dosage: BID (2500 MG/DAY)
     Route: 048
     Dates: start: 20170802
  5. LAMOTRIGINE [Concomitant]
     Active Substance: LAMOTRIGINE
     Indication: Infantile spasms
     Dosage: 275 MG/DAY
     Route: 048
     Dates: start: 2013
  6. INOVELON [Concomitant]
     Active Substance: RUFINAMIDE
     Indication: Infantile spasms
     Dosage: 1000 MG/DAY
     Route: 048
  7. INOVELON [Concomitant]
     Active Substance: RUFINAMIDE
     Dosage: 800 MG/DAY
     Route: 048
     Dates: start: 20171218, end: 20180313
  8. INOVELON [Concomitant]
     Active Substance: RUFINAMIDE
     Dosage: 600 MG/DAY
     Route: 048
     Dates: start: 20180314, end: 20181016
  9. INOVELON [Concomitant]
     Active Substance: RUFINAMIDE
     Dosage: 500 MG/DAY
     Route: 048
     Dates: start: 20181017, end: 20181120
  10. INOVELON [Concomitant]
     Active Substance: RUFINAMIDE
     Dosage: 400 MG/DAY
     Route: 048
     Dates: start: 20181121, end: 20181225
  11. INOVELON [Concomitant]
     Active Substance: RUFINAMIDE
     Dosage: 500 MG/DAY
     Route: 048
     Dates: start: 20181226, end: 20190129
  12. INOVELON [Concomitant]
     Active Substance: RUFINAMIDE
     Dosage: 600 MG/DAY
     Route: 048
     Dates: start: 20190130, end: 20190226
  13. INOVELON [Concomitant]
     Active Substance: RUFINAMIDE
     Dosage: 700 MG/DAY
     Route: 048
     Dates: start: 20190227
  14. PERAMPANEL [Concomitant]
     Active Substance: PERAMPANEL
     Indication: Infantile spasms
     Dosage: 2 MG/DAY
     Route: 048
     Dates: start: 20171025, end: 20190129
  15. TOPIRAMATE [Concomitant]
     Active Substance: TOPIRAMATE
     Indication: Infantile spasms
     Dosage: 250 MG/DAY
     Route: 048
  16. TOPIRAMATE [Concomitant]
     Active Substance: TOPIRAMATE
     Dosage: 200 MG/DAY
     Route: 048
     Dates: start: 20170719, end: 20170822
  17. TOPIRAMATE [Concomitant]
     Active Substance: TOPIRAMATE
     Dosage: 100 MG/DAY
     Route: 048
     Dates: start: 20170823, end: 20170926

REACTIONS (6)
  - Retinogram abnormal [Not Recovered/Not Resolved]
  - Bronchitis [Recovering/Resolving]
  - Bronchitis [Recovering/Resolving]
  - Constipation [Not Recovered/Not Resolved]
  - Hyponatraemia [Not Recovered/Not Resolved]
  - Somnolence [Recovered/Resolved]

NARRATIVE: CASE EVENT DATE: 20170630
